FAERS Safety Report 8397833-6 (Version None)
Quarter: 2012Q2

REPORT INFORMATION
  Report Type: 
  Country: None (occurrence: None)
  Receive Date: 20120531
  Receipt Date: 20120522
  Transmission Date: 20120825
  Serious: Yes (Hospitalization)
  Sender: FDA-Public Use
  Company Number: JP-JNJFOC-20120518760

PATIENT
  Age: 44 Year
  Sex: Male

DRUGS (7)
  1. OXAROL [Concomitant]
     Route: 065
  2. STELARA [Suspect]
     Indication: PRODUCT USED FOR UNKNOWN INDICATION
     Route: 058
     Dates: start: 20120501, end: 20120501
  3. PRAVASTAN [Concomitant]
     Route: 048
  4. LORFENAMIN [Concomitant]
     Route: 048
  5. MUCOSTA [Concomitant]
     Route: 065
  6. LOXONIN [Concomitant]
     Route: 061
  7. CLOBETASOL PROPIONATE [Concomitant]
     Route: 065

REACTIONS (2)
  - PANCYTOPENIA [None]
  - LEUKAEMIA [None]
